FAERS Safety Report 15095119 (Version 4)
Quarter: 2018Q3

REPORT INFORMATION
  Report Type: Report from Study
  Country: MX (occurrence: MX)
  Receive Date: 20180702
  Receipt Date: 20180716
  Transmission Date: 20181010
  Serious: Yes (Death, Hospitalization)
  Sender: FDA-Public Use
  Company Number: MX-UCBSA-2018027763

PATIENT
  Age: 1 Year
  Sex: Male

DRUGS (6)
  1. KEPPRA [Suspect]
     Active Substance: LEVETIRACETAM
     Dosage: 0.6 ML, 2X/DAY (BID)
     Route: 048
     Dates: start: 20170802, end: 201708
  2. BRIVARACETAM [Suspect]
     Active Substance: BRIVARACETAM
     Dosage: DOSE INCREASING
  3. KEPPRA [Suspect]
     Active Substance: LEVETIRACETAM
     Dosage: 1.2 ML, 2X/DAY (BID)
     Route: 048
     Dates: start: 2017
  4. BRIVARACETAM [Suspect]
     Active Substance: BRIVARACETAM
     Indication: EPILEPSY
     Dosage: TABLETS OF 50MG (UNKNOWN DOSE, EVERY 12 HRS), 2X/DAY (BID)
     Route: 048
     Dates: start: 201705
  5. KEPPRA [Suspect]
     Active Substance: LEVETIRACETAM
     Indication: PRODUCT USED FOR UNKNOWN INDICATION
     Dosage: UNK
     Dates: start: 201705, end: 2017
  6. KEPPRA [Suspect]
     Active Substance: LEVETIRACETAM
     Dosage: 0.9 ML, 2X/DAY (BID)
     Route: 048
     Dates: start: 2017, end: 2017

REACTIONS (3)
  - Death [Fatal]
  - Urinary tract infection [Recovered/Resolved]
  - Off label use [Unknown]

NARRATIVE: CASE EVENT DATE: 201705
